APPROVED DRUG PRODUCT: DESOGESTREL AND ETHINYL ESTRADIOL
Active Ingredient: DESOGESTREL; ETHINYL ESTRADIOL
Strength: 0.1MG,0.125MG,0.15MG;0.025MG,0.025MG,0.025MG
Dosage Form/Route: TABLET;ORAL-28
Application: A077182 | Product #001
Applicant: DR REDDYS LABORATORIES SA
Approved: Jan 24, 2006 | RLD: No | RS: No | Type: DISCN